FAERS Safety Report 14046495 (Version 1)
Quarter: 2017Q4

REPORT INFORMATION
  Report Type: Spontaneous
  Country: US (occurrence: None)
  Receive Date: 20171005
  Receipt Date: 20171005
  Transmission Date: 20180321
  Serious: No
  Sender: FDA-Public Use
  Company Number: None

PATIENT
  Age: 43 Year
  Sex: Female

DRUGS (1)
  1. METHOTREXATE INJ 50 MG/2ML [Suspect]
     Active Substance: METHOTREXATE SODIUM

REACTIONS (3)
  - Headache [None]
  - Diarrhoea [None]
  - Skin exfoliation [None]

NARRATIVE: CASE EVENT DATE: 20171003
